FAERS Safety Report 6688287-6 (Version None)
Quarter: 2010Q2

REPORT INFORMATION
  Report Type: 
  Country: None (occurrence: None)
  Receive Date: 20100420
  Receipt Date: 20100408
  Transmission Date: 20101027
  Serious: Yes (Other)
  Sender: FDA-Public Use
  Company Number: US-ROCHE-694699

PATIENT
  Sex: Male
  Weight: 111 kg

DRUGS (1)
  1. CAPECITABINE [Suspect]
     Indication: DRUG USE FOR UNKNOWN INDICATION
     Dosage: AM AND PM
     Route: 048
     Dates: end: 20100323

REACTIONS (3)
  - ABDOMINAL DISTENSION [None]
  - BLOOD BILIRUBIN INCREASED [None]
  - JAUNDICE [None]
